FAERS Safety Report 24344784 (Version 2)
Quarter: 2024Q4

REPORT INFORMATION
  Report Type: Spontaneous
  Country: US (occurrence: US)
  Receive Date: 20240920
  Receipt Date: 20241021
  Transmission Date: 20250115
  Serious: No
  Sender: PFIZER
  Company Number: US-PFIZER INC-202400258521

PATIENT
  Age: 60 Year
  Sex: Female
  Weight: 65.77 kg

DRUGS (1)
  1. TIVDAK [Suspect]
     Active Substance: TISOTUMAB VEDOTIN-TFTV
     Dosage: UNK
     Dates: end: 20240903

REACTIONS (1)
  - Eye disorder [Unknown]
